FAERS Safety Report 5585215-1 (Version None)
Quarter: 2008Q1

REPORT INFORMATION
  Report Type: 
  Country: None (occurrence: None)
  Receive Date: 20080109
  Receipt Date: 20080107
  Transmission Date: 20080703
  Serious: Yes (Hospitalization)
  Sender: FDA-Public Use
  Company Number: PHRM2008FR00451

PATIENT
  Age: 63 Year
  Sex: Male

DRUGS (1)
  1. TRILEPTAL [Suspect]
     Indication: SCHIZOPHRENIA
     Route: 048
     Dates: start: 20071015, end: 20071017

REACTIONS (1)
  - DRUG RASH WITH EOSINOPHILIA AND SYSTEMIC SYMPTOMS [None]
